FAERS Safety Report 11507296 (Version 1)
Quarter: 2015Q3

REPORT INFORMATION
  Report Type: Spontaneous
  Country: US (occurrence: US)
  Receive Date: 20150915
  Receipt Date: 20150915
  Transmission Date: 20151125
  Serious: No
  Sender: FDA-Public Use
  Company Number: US-BANPHARM-20154043

PATIENT
  Age: 79 Year
  Sex: Female
  Weight: 63.5 kg

DRUGS (2)
  1. LITHYDRON [Concomitant]
     Indication: HYPERTENSION
     Dosage: 20MG, QD,
  2. ZYRTEC [Suspect]
     Active Substance: CETIRIZINE HYDROCHLORIDE
     Indication: PRURITUS
     Dosage: 1 DF, QD,
     Route: 048
     Dates: start: 20150623

REACTIONS (1)
  - Drug effect incomplete [Unknown]
